FAERS Safety Report 6267669-0 (Version None)
Quarter: 2009Q3

REPORT INFORMATION
  Report Type: 
  Country: None (occurrence: None)
  Receive Date: 20090714
  Receipt Date: 20090710
  Transmission Date: 20100115
  Serious: Yes (Life-Threatening, Hospitalization)
  Sender: FDA-Public Use
  Company Number: PHHY2009ES28344

PATIENT
  Age: 73 Year
  Sex: Male

DRUGS (2)
  1. MYFORTIC [Suspect]
     Indication: MYASTHENIA GRAVIS
     Dosage: UNK
     Dates: start: 20081001
  2. OMEPRAZOLE [Concomitant]

REACTIONS (2)
  - DEEP VEIN THROMBOSIS [None]
  - PULMONARY EMBOLISM [None]
